FAERS Safety Report 24399127 (Version 1)
Quarter: 2024Q4

REPORT INFORMATION
  Report Type: Spontaneous
  Country: US (occurrence: None)
  Receive Date: 20241004
  Receipt Date: 20241004
  Transmission Date: 20250114
  Serious: No
  Sender: Public
  Company Number: None

PATIENT
  Sex: 0

DRUGS (2)
  1. XALATAN [Suspect]
     Active Substance: LATANOPROST
  2. TRAVATAN Z [Suspect]
     Active Substance: TRAVOPROST

REACTIONS (1)
  - Treatment failure [None]

NARRATIVE: CASE EVENT DATE: 20241004
